FAERS Safety Report 15899926 (Version 1)
Quarter: 2019Q1

REPORT INFORMATION
  Report Type: Spontaneous
  Country: US (occurrence: US)
  Receive Date: 20190201
  Receipt Date: 20190201
  Transmission Date: 20190417
  Serious: Yes (Hospitalization)
  Sender: FDA-Public Use
  Company Number: US-NOVAST LABORATORIES, LTD-US-2019NOV000019

PATIENT
  Age: 55 Year
  Sex: Male

DRUGS (3)
  1. CLINDAMYCIN PHOSPHATE. [Suspect]
     Active Substance: CLINDAMYCIN PHOSPHATE
     Indication: OSTEOMYELITIS
     Dosage: UNK
  2. DAPTOMYCIN. [Suspect]
     Active Substance: DAPTOMYCIN
     Indication: OSTEOMYELITIS
     Dosage: UNK
  3. METRONIDAZOLE. [Suspect]
     Active Substance: METRONIDAZOLE
     Indication: OSTEOMYELITIS
     Dosage: UNK

REACTIONS (1)
  - Drug reaction with eosinophilia and systemic symptoms [Recovered/Resolved]
